FAERS Safety Report 13365758 (Version 1)
Quarter: 2017Q1

REPORT INFORMATION
  Report Type: Spontaneous
  Country: US (occurrence: US)
  Receive Date: 20170323
  Receipt Date: 20170323
  Transmission Date: 20170429
  Serious: No
  Sender: FDA-Public Use
  Company Number: US-WARNER CHILCOTT-2016-002148

PATIENT
  Sex: Female
  Weight: 67.12 kg

DRUGS (4)
  1. HYDROCHLOROTHIAZIDE. [Concomitant]
     Active Substance: HYDROCHLOROTHIAZIDE
     Indication: HYPERTENSION
     Dosage: 12.5 MG, DAILY
     Route: 048
  2. ESTRACE [Suspect]
     Active Substance: ESTRADIOL
     Indication: VULVOVAGINAL DRYNESS
     Dosage: A LITTLE BIT TO VAGINAL AREA, M-F DAILY
     Route: 067
     Dates: start: 201511
  3. PRILOSEC [Concomitant]
     Active Substance: OMEPRAZOLE MAGNESIUM
     Indication: GASTRIC DISORDER
     Dosage: UNK
     Route: 048
  4. ESTRACE [Suspect]
     Active Substance: ESTRADIOL
     Dosage: LITTLE BIT TO VAGINAL AREA, M-W-F
     Route: 067
     Dates: end: 20160915

REACTIONS (3)
  - Wrong technique in product usage process [Unknown]
  - Vaginal pH abnormal [Not Recovered/Not Resolved]
  - Vulvovaginal burning sensation [Recovering/Resolving]
